FAERS Safety Report 14682129 (Version 4)
Quarter: 2019Q1

REPORT INFORMATION
  Report Type: Spontaneous
  Country: US (occurrence: US)
  Receive Date: 20180326
  Receipt Date: 20190206
  Transmission Date: 20190417
  Serious: No
  Sender: FDA-Public Use
  Company Number: US-ALLERGAN-1815725US

PATIENT
  Sex: Female
  Weight: 92.63 kg

DRUGS (1)
  1. LILETTA [Suspect]
     Active Substance: LEVONORGESTREL
     Indication: CONTRACEPTION
     Dosage: 52 MG, SINGLE
     Route: 015
     Dates: start: 20170216, end: 20171113

REACTIONS (3)
  - Pregnancy [Unknown]
  - Device expulsion [Unknown]
  - Drug ineffective [Unknown]
